FAERS Safety Report 25678360 (Version 1)
Quarter: 2025Q3

REPORT INFORMATION
  Report Type: Spontaneous
  Country: US (occurrence: US)
  Receive Date: 20250813
  Receipt Date: 20250813
  Transmission Date: 20251020
  Serious: No
  Sender: PRINSTON PHARMACEUTICAL
  Company Number: US-PRINSTON PHARMACEUTICAL INC.-2024PRN00272

PATIENT
  Age: 80 Year
  Sex: Male

DRUGS (1)
  1. LISINOPRIL [Suspect]
     Active Substance: LISINOPRIL

REACTIONS (2)
  - Blood pressure increased [Not Recovered/Not Resolved]
  - Product substitution issue [Not Recovered/Not Resolved]
